FAERS Safety Report 25264687 (Version 1)
Quarter: 2025Q2

REPORT INFORMATION
  Report Type: Spontaneous
  Country: TW (occurrence: TW)
  Receive Date: 20250502
  Receipt Date: 20250502
  Transmission Date: 20250716
  Serious: Yes (Life-Threatening, Hospitalization)
  Sender: AMGEN
  Company Number: TW-AMGEN-TWNSP2025084048

PATIENT
  Age: 62 Year
  Sex: Female

DRUGS (6)
  1. BEVACIZUMAB [Suspect]
     Active Substance: BEVACIZUMAB
     Indication: Ovarian cancer
     Dosage: 15 MILLIGRAM/KILOGRAM, Q3WK (900 MG)
     Route: 040
  2. BEVACIZUMAB [Suspect]
     Active Substance: BEVACIZUMAB
     Route: 040
     Dates: start: 202403
  3. CARBOPLATIN [Concomitant]
     Active Substance: CARBOPLATIN
     Dates: start: 202111, end: 202203
  4. PACLITAXEL [Concomitant]
     Active Substance: PACLITAXEL
     Dates: start: 202111, end: 202203
  5. GEMCITABINE [Concomitant]
     Active Substance: GEMCITABINE
  6. DOXORUBICIN [Concomitant]
     Active Substance: DOXORUBICIN
     Dates: start: 202310, end: 202402

REACTIONS (5)
  - Interstitial lung disease [Recovering/Resolving]
  - Anaemia [Recovering/Resolving]
  - Hyponatraemia [Recovering/Resolving]
  - Hypertension [Recovering/Resolving]
  - Hypoalbuminaemia [Recovering/Resolving]
